FAERS Safety Report 23691382 (Version 1)
Quarter: 2024Q2

REPORT INFORMATION
  Report Type: Report from Study
  Country: JP (occurrence: JP)
  Receive Date: 20240401
  Receipt Date: 20240401
  Transmission Date: 20240716
  Serious: Yes (Hospitalization)
  Sender: FDA-Public Use
  Company Number: JP-TEVA-VS-3174204

PATIENT

DRUGS (2)
  1. DIAZEPAM [Suspect]
     Active Substance: DIAZEPAM
     Indication: Sedative therapy
     Route: 065
  2. FLUMAZENIL [Suspect]
     Active Substance: FLUMAZENIL
     Indication: Anaesthesia reversal
     Route: 065

REACTIONS (3)
  - Respiratory arrest [Recovering/Resolving]
  - Hypoxia [Recovering/Resolving]
  - Drug ineffective [Unknown]
